FAERS Safety Report 9000584 (Version 2)
Quarter: 2013Q1

REPORT INFORMATION
  Report Type: Spontaneous
  Country: US (occurrence: US)
  Receive Date: 20130107
  Receipt Date: 20130211
  Transmission Date: 20140127
  Serious: No
  Sender: FDA-Public Use
  Company Number: US-PFIZER INC-2013005268

PATIENT
  Age: 57 Year
  Sex: Female
  Weight: 53.97 kg

DRUGS (5)
  1. ZOLOFT [Suspect]
     Indication: BIPOLAR I DISORDER
     Dosage: 300 MG, DAILY
     Dates: start: 2001
  2. ZOLOFT [Suspect]
     Dosage: UNK
  3. LITHIUM [Concomitant]
     Dosage: 200 MG, DAILY
  4. SYNTHROID [Concomitant]
     Dosage: UNK
  5. KLONOPIN [Concomitant]
     Dosage: UNK

REACTIONS (1)
  - Cataract [Not Recovered/Not Resolved]
